FAERS Safety Report 7170283-6 (Version None)
Quarter: 2010Q4

REPORT INFORMATION
  Report Type: 
  Country: None (occurrence: None)
  Receive Date: 20101217
  Receipt Date: 20101210
  Transmission Date: 20110411
  Serious: Yes (Other)
  Sender: FDA-Public Use
  Company Number: US-PFIZER INC-2009257768

PATIENT
  Sex: Female

DRUGS (12)
  1. GEODON [Suspect]
     Dosage: 20 MG, 1X/DAY
  2. GEODON [Suspect]
     Dosage: 40 MG, 1X/DAY
     Route: 048
     Dates: start: 20100501, end: 20101101
  3. XANAX [Suspect]
     Indication: BIPOLAR I DISORDER
     Dosage: 2 MG, 1X/DAY
  4. ZYPREXA [Suspect]
     Indication: BIPOLAR I DISORDER
     Dosage: UNK
  5. PALIPERIDONE [Suspect]
     Indication: BIPOLAR I DISORDER
     Dosage: UNK
  6. VALPROIC ACID [Suspect]
     Indication: BIPOLAR I DISORDER
     Dosage: UNK
  7. SEROQUEL [Suspect]
     Indication: BIPOLAR I DISORDER
     Dosage: UNK
  8. SEROQUEL [Suspect]
     Dosage: 80 MG, 1X/DAY
     Dates: start: 20100101
  9. ASENAPINE [Suspect]
     Dosage: 5 MG, 1X/DAY
     Dates: start: 20100101, end: 20100101
  10. LAMICTAL [Concomitant]
     Dosage: UNK
  11. SERAX [Concomitant]
     Dosage: UNK
  12. CLONAZEPAM [Concomitant]
     Dosage: UNK

REACTIONS (11)
  - ALOPECIA [None]
  - ANGER [None]
  - BLOOD PRESSURE INCREASED [None]
  - DEPENDENCE [None]
  - DRUG WITHDRAWAL SYNDROME [None]
  - DYSKINESIA [None]
  - DYSPHAGIA [None]
  - INSOMNIA [None]
  - MYALGIA [None]
  - PALPITATIONS [None]
  - PSYCHOTIC DISORDER [None]
